FAERS Safety Report 9549211 (Version 3)
Quarter: 2014Q4

REPORT INFORMATION
  Report Type: Spontaneous
  Country: BR (occurrence: BR)
  Receive Date: 20130924
  Receipt Date: 20141018
  Transmission Date: 20150529
  Serious: Yes (Hospitalization, Other)
  Sender: FDA-Public Use
  Company Number: BR-ABBVIE-13P-020-1148885-00

PATIENT
  Sex: Female
  Weight: 60 kg

DRUGS (16)
  1. OMEPRAZOLE. [Concomitant]
     Active Substance: OMEPRAZOLE
     Indication: GASTRIC DISORDER
     Dosage: 40 MG DAILY AT FASTING
     Route: 048
  2. LIPLESS [Concomitant]
     Active Substance: CIPROFIBRATE
     Indication: BLOOD TRIGLYCERIDES
     Route: 048
     Dates: start: 20140411, end: 201409
  3. PREDNISONE. [Concomitant]
     Active Substance: PREDNISONE
     Indication: CROHN^S DISEASE
     Route: 048
     Dates: start: 201307
  4. CIPIDE [Concomitant]
     Indication: BLOOD TRIGLYCERIDES
     Route: 048
     Dates: start: 2014
  5. HUMIRA [Suspect]
     Active Substance: ADALIMUMAB
     Route: 058
  6. IMOSEC [Concomitant]
     Active Substance: LOPERAMIDE
     Indication: DIARRHOEA
     Route: 048
     Dates: start: 201307
  7. HUMIRA [Suspect]
     Active Substance: ADALIMUMAB
     Indication: FISTULA
     Route: 058
  8. AZATHIOPRINE. [Suspect]
     Active Substance: AZATHIOPRINE
     Route: 048
  9. AZATHIOPRINE. [Suspect]
     Active Substance: AZATHIOPRINE
     Route: 048
     Dates: start: 201308
  10. LUFTAL [Concomitant]
     Indication: ABDOMINAL DISTENSION
     Route: 048
  11. OMEPRAZOLE. [Concomitant]
     Active Substance: OMEPRAZOLE
     Indication: PROPHYLAXIS
  12. HUMIRA [Suspect]
     Active Substance: ADALIMUMAB
     Indication: CROHN^S DISEASE
     Dosage: INDUCTION DOSE
     Route: 058
  13. HUMIRA [Suspect]
     Active Substance: ADALIMUMAB
     Route: 058
  14. AZATHIOPRINE. [Suspect]
     Active Substance: AZATHIOPRINE
     Indication: CROHN^S DISEASE
     Route: 048
     Dates: start: 2012
  15. MULTIVITAMIN (CENTRUM WOMAN) [Concomitant]
     Indication: VITAMIN SUPPLEMENTATION
     Route: 048
     Dates: start: 201408
  16. CONCOR [Concomitant]
     Active Substance: BISOPROLOL FUMARATE
     Indication: BLOOD TRIGLYCERIDES ABNORMAL
     Route: 048
     Dates: start: 201408

REACTIONS (10)
  - Hepatic steatosis [Unknown]
  - Gastrointestinal disorder [Recovering/Resolving]
  - Pancreatitis [Recovering/Resolving]
  - Anaemia [Not Recovered/Not Resolved]
  - Intestinal fistula [Unknown]
  - Liver disorder [Unknown]
  - Abdominal infection [Recovered/Resolved]
  - Gastrointestinal infection [Unknown]
  - Liver abscess [Unknown]
  - Malaise [Unknown]

NARRATIVE: CASE EVENT DATE: 2012
